FAERS Safety Report 19846179 (Version 1)
Quarter: 2021Q3

REPORT INFORMATION
  Report Type: Spontaneous
  Country: DE (occurrence: DE)
  Receive Date: 20210917
  Receipt Date: 20210917
  Transmission Date: 20211014
  Serious: Yes (Hospitalization)
  Sender: FDA-Public Use
  Company Number: DE-TEVA-2021-DE-1952567

PATIENT
  Age: 28 Year
  Sex: Female

DRUGS (1)
  1. FINGOLIMOD. [Suspect]
     Active Substance: FINGOLIMOD
     Dosage: .5 DOSAGE FORMS DAILY;  1?0?0?0
     Route: 048

REACTIONS (2)
  - Visual impairment [Unknown]
  - Headache [Unknown]
